FAERS Safety Report 7427353-4 (Version None)
Quarter: 2011Q2

REPORT INFORMATION
  Report Type: 
  Country: None (occurrence: None)
  Receive Date: 20110420
  Receipt Date: 20110411
  Transmission Date: 20111010
  Serious: Yes (Other)
  Sender: FDA-Public Use
  Company Number: US-ELI_LILLY_AND_COMPANY-US201104005193

PATIENT
  Sex: Male

DRUGS (3)
  1. LEVEMIR [Concomitant]
     Indication: DIABETES MELLITUS
     Dosage: UNK
  2. HUMULIN N [Suspect]
     Indication: DIABETES MELLITUS
     Dosage: UNK, UNKNOWN
  3. HUMALOG [Suspect]
     Indication: DIABETES MELLITUS
     Dosage: 10 U, UNK

REACTIONS (6)
  - THERAPEUTIC RESPONSE UNEXPECTED [None]
  - HYPOGLYCAEMIC UNCONSCIOUSNESS [None]
  - ILL-DEFINED DISORDER [None]
  - MALAISE [None]
  - INCORRECT DOSE ADMINISTERED [None]
  - WRONG DRUG ADMINISTERED [None]
